FAERS Safety Report 20264844 (Version 2)
Quarter: 2022Q3

REPORT INFORMATION
  Report Type: Spontaneous
  Country: US (occurrence: None)
  Receive Date: 20211231
  Receipt Date: 20220804
  Transmission Date: 20221026
  Serious: Yes (Other)
  Sender: FDA-Public Use
  Company Number: 2021A904672

PATIENT
  Age: 44 Year
  Sex: Male
  Weight: 102.1 kg

DRUGS (49)
  1. PRILOSEC [Suspect]
     Active Substance: OMEPRAZOLE MAGNESIUM
     Indication: Gastrooesophageal reflux disease
     Route: 048
     Dates: start: 2012, end: 2017
  2. PRILOSEC [Suspect]
     Active Substance: OMEPRAZOLE MAGNESIUM
     Indication: Gastrooesophageal reflux disease
     Dosage: GENERIC
     Route: 048
     Dates: start: 2015
  3. PRILOSEC OTC [Suspect]
     Active Substance: OMEPRAZOLE MAGNESIUM
     Indication: Gastrooesophageal reflux disease
     Route: 048
     Dates: start: 2012, end: 2017
  4. PRILOSEC OTC [Suspect]
     Active Substance: OMEPRAZOLE MAGNESIUM
     Indication: Gastrooesophageal reflux disease
     Route: 048
     Dates: start: 20120101, end: 20171231
  5. PANTOPRAZOLE [Suspect]
     Active Substance: PANTOPRAZOLE
     Indication: Gastrooesophageal reflux disease
     Dosage: GENERIC
     Route: 065
     Dates: start: 2019, end: 2020
  6. HYDRALAZINE [Concomitant]
     Active Substance: HYDRALAZINE HYDROCHLORIDE
     Indication: Blood pressure abnormal
     Route: 065
  7. PRAVASTATIN [Concomitant]
     Active Substance: PRAVASTATIN
     Indication: Blood cholesterol abnormal
     Route: 065
  8. TORSEMIDE [Concomitant]
     Active Substance: TORSEMIDE
     Indication: Oedema
     Route: 065
     Dates: start: 2018
  9. TRAMADOL [Concomitant]
     Active Substance: TRAMADOL
     Indication: Pain
     Route: 065
  10. NAPROXEN [Concomitant]
     Active Substance: NAPROXEN
     Indication: Pain
     Route: 065
     Dates: start: 2015
  11. AZITHROMYCIN [Concomitant]
     Active Substance: AZITHROMYCIN
     Indication: Infection
     Route: 065
     Dates: start: 2017
  12. VITAMINS [Concomitant]
     Active Substance: VITAMINS
     Indication: Routine health maintenance
     Dosage: DAILY
     Route: 065
  13. GARLIC PILLS [Concomitant]
     Indication: Cardiac disorder
     Dosage: DAILY
     Route: 065
  14. GARLIC PILLS [Concomitant]
     Indication: Blood pressure abnormal
     Dosage: DAILY
     Route: 065
  15. CYANOCOBALAMIN [Concomitant]
     Active Substance: CYANOCOBALAMIN
  16. KERLIX [Concomitant]
  17. KETOCONAZOLE [Concomitant]
     Active Substance: KETOCONAZOLE
  18. LABETALOL [Concomitant]
     Active Substance: LABETALOL\LABETALOL HYDROCHLORIDE
  19. LOPERAMIDE [Concomitant]
     Active Substance: LOPERAMIDE
  20. ACETAMINOPHEN [Concomitant]
     Active Substance: ACETAMINOPHEN
  21. ALBUTEROL [Concomitant]
     Active Substance: ALBUTEROL
  22. AMITRIPTYLINE [Concomitant]
     Active Substance: AMITRIPTYLINE
  23. AMLODIPINE [Concomitant]
     Active Substance: AMLODIPINE BESYLATE
  24. AMMONIUM ACETATE [Concomitant]
     Active Substance: AMMONIUM ACETATE
  25. BUMETANIDE [Concomitant]
     Active Substance: BUMETANIDE
  26. CALCITRIOL [Concomitant]
     Active Substance: CALCITRIOL
  27. CADEXOMER [Concomitant]
  28. CARRAKLENZ [Concomitant]
  29. CLINDAMYCIN [Concomitant]
     Active Substance: CLINDAMYCIN
  30. CLONIDINE [Concomitant]
     Active Substance: CLONIDINE
  31. ONDANSETRON [Concomitant]
     Active Substance: ONDANSETRON
  32. POVIDONE [Concomitant]
     Active Substance: POVIDONE
  33. SILDENAFIL [Concomitant]
     Active Substance: SILDENAFIL
  34. GLIPIZIDE [Concomitant]
     Active Substance: GLIPIZIDE
  35. ERGOCALCIFEROL [Concomitant]
     Active Substance: ERGOCALCIFEROL
  36. TIZANIDINE [Concomitant]
     Active Substance: TIZANIDINE
  37. MIRTAZAPINE [Concomitant]
     Active Substance: MIRTAZAPINE
  38. METHOCARBAMOL [Concomitant]
     Active Substance: METHOCARBAMOL
  39. HYDROXYZINE [Concomitant]
     Active Substance: HYDROXYZINE HYDROCHLORIDE
  40. BUSPIRONE [Concomitant]
     Active Substance: BUSPIRONE HYDROCHLORIDE
  41. CLOBETASOL [Concomitant]
     Active Substance: CLOBETASOL
  42. CLOTRIMAZOLE [Concomitant]
     Active Substance: CLOTRIMAZOLE
  43. ATENOLOL [Concomitant]
     Active Substance: ATENOLOL
  44. VARDENAFIL [Concomitant]
     Active Substance: VARDENAFIL HYDROCHLORIDE
  45. VALSARTAN [Concomitant]
     Active Substance: VALSARTAN
  46. VARENICLINE [Concomitant]
     Active Substance: VARENICLINE
  47. ALPRAZOLAM [Concomitant]
     Active Substance: ALPRAZOLAM
  48. HYDROCHLOROTHIAZIDE [Concomitant]
     Active Substance: HYDROCHLOROTHIAZIDE
  49. VENLAFAXINE [Concomitant]
     Active Substance: VENLAFAXINE HYDROCHLORIDE

REACTIONS (6)
  - Chronic kidney disease [Not Recovered/Not Resolved]
  - End stage renal disease [Not Recovered/Not Resolved]
  - Acute kidney injury [Not Recovered/Not Resolved]
  - Renal failure [Unknown]
  - Nephrogenic anaemia [Unknown]
  - Gastrooesophageal reflux disease [Not Recovered/Not Resolved]

NARRATIVE: CASE EVENT DATE: 20160101
